FAERS Safety Report 5017117-3 (Version None)
Quarter: 2006Q2

REPORT INFORMATION
  Report Type: 
  Country: None (occurrence: None)
  Receive Date: 20060602
  Receipt Date: 20060524
  Transmission Date: 20061013
  Serious: Yes (Other)
  Sender: FDA-Public Use
  Company Number: FR-AVENTIS-200611915FR

PATIENT
  Age: 76 Year
  Sex: Male

DRUGS (3)
  1. AMARYL [Suspect]
     Indication: DIABETES MELLITUS NON-INSULIN-DEPENDENT
     Route: 048
     Dates: start: 20050510
  2. BIPROFENID [Concomitant]
     Route: 048
  3. LIPANOR [Concomitant]

REACTIONS (2)
  - LEUKOCYTOSIS [None]
  - THROMBOCYTHAEMIA [None]
